FAERS Safety Report 7638333-8 (Version None)
Quarter: 2011Q3

REPORT INFORMATION
  Report Type: 
  Country: None (occurrence: None)
  Receive Date: 20110727
  Receipt Date: 20110720
  Transmission Date: 20111222
  Serious: Yes (Hospitalization)
  Sender: FDA-Public Use
  Company Number: DE-ABBOTT-11P-062-0839407-00

PATIENT
  Sex: Male

DRUGS (6)
  1. INSULIN [Concomitant]
     Indication: DIABETES MELLITUS
     Route: 058
     Dates: start: 20110127
  2. LEUPROLIDE ACETATE [Suspect]
     Indication: PROSTATE CANCER
     Route: 058
     Dates: start: 20110408
  3. METOPROLOL TARTRATE [Concomitant]
     Indication: HYPERTENSION
     Dosage: PRIOR USE
     Route: 048
     Dates: start: 20100101
  4. BICALUTAMIDE [Concomitant]
     Indication: PROSTATE CANCER
     Dosage: DAILY DOSE: 150MG
     Route: 048
  5. TAMSUNAR [Concomitant]
     Indication: PROSTATE CANCER
     Dosage: DAILY DOSE: 0.4MG
     Route: 048
     Dates: start: 20110404
  6. MICARDIS [Concomitant]
     Indication: HYPERTENSION
     Dosage: PRIOR USE
     Route: 048
     Dates: start: 20100101

REACTIONS (1)
  - PANCREATIC CARCINOMA [None]
